FAERS Safety Report 25461670 (Version 1)
Quarter: 2025Q2

REPORT INFORMATION
  Report Type: Spontaneous
  Country: FR (occurrence: FR)
  Receive Date: 20250620
  Receipt Date: 20250620
  Transmission Date: 20250717
  Serious: Yes (Life-Threatening, Hospitalization)
  Sender: MYLAN
  Company Number: None

PATIENT
  Age: 69 Year
  Sex: Female
  Weight: 66 kg

DRUGS (12)
  1. MIRTAZAPINE [Suspect]
     Active Substance: MIRTAZAPINE
     Indication: Mixed anxiety and depressive disorder
     Dosage: 15 MILLIGRAM, QD
     Dates: start: 2023
  2. MIRTAZAPINE [Suspect]
     Active Substance: MIRTAZAPINE
     Dosage: 15 MILLIGRAM, QD
     Route: 048
     Dates: start: 2023
  3. MIRTAZAPINE [Suspect]
     Active Substance: MIRTAZAPINE
     Dosage: 15 MILLIGRAM, QD
     Route: 048
     Dates: start: 2023
  4. MIRTAZAPINE [Suspect]
     Active Substance: MIRTAZAPINE
     Dosage: 15 MILLIGRAM, QD
     Dates: start: 2023
  5. DULOXETINE [Suspect]
     Active Substance: DULOXETINE
     Indication: Mixed anxiety and depressive disorder
     Dosage: 30 MILLIGRAM, QD
     Dates: start: 2023, end: 20250516
  6. DULOXETINE [Suspect]
     Active Substance: DULOXETINE
     Dosage: 30 MILLIGRAM, QD
     Route: 048
     Dates: start: 2023, end: 20250516
  7. DULOXETINE [Suspect]
     Active Substance: DULOXETINE
     Dosage: 30 MILLIGRAM, QD
     Route: 048
     Dates: start: 2023, end: 20250516
  8. DULOXETINE [Suspect]
     Active Substance: DULOXETINE
     Dosage: 30 MILLIGRAM, QD
     Dates: start: 2023, end: 20250516
  9. PRAZEPAM [Concomitant]
     Active Substance: PRAZEPAM
     Indication: Mixed anxiety and depressive disorder
  10. PRAZEPAM [Concomitant]
     Active Substance: PRAZEPAM
     Route: 048
  11. PRAZEPAM [Concomitant]
     Active Substance: PRAZEPAM
     Route: 048
  12. PRAZEPAM [Concomitant]
     Active Substance: PRAZEPAM

REACTIONS (1)
  - Dilated cardiomyopathy [Not Recovered/Not Resolved]

NARRATIVE: CASE EVENT DATE: 20241201
